FAERS Safety Report 9435852 (Version 1)
Quarter: 2013Q3

REPORT INFORMATION
  Report Type: Spontaneous
  Country: US (occurrence: None)
  Receive Date: 20130801
  Receipt Date: 20130801
  Transmission Date: 20140515
  Serious: Yes (Other)
  Sender: FDA-Public Use
  Company Number: None

PATIENT
  Age: 60 Year
  Sex: Female
  Weight: 129 kg

DRUGS (1)
  1. BUPROPION XL [Suspect]
     Indication: ANTIDEPRESSANT THERAPY
     Dosage: 1 TABLET 150 MG DAILY PO
     Route: 048
     Dates: start: 20130711, end: 20130718

REACTIONS (7)
  - Retching [None]
  - Throat tightness [None]
  - Headache [None]
  - Abdominal distension [None]
  - Pharyngeal oedema [None]
  - Abdominal pain upper [None]
  - Foreign body [None]
